FAERS Safety Report 7152630-4 (Version None)
Quarter: 2010Q4

REPORT INFORMATION
  Report Type: 
  Country: None (occurrence: None)
  Receive Date: 20101208
  Receipt Date: 20101208
  Transmission Date: 20110411
  Serious: Yes (Life-Threatening)
  Sender: FDA-Public Use
  Company Number: None

PATIENT
  Age: 40 Year
  Sex: Female
  Weight: 81.6475 kg

DRUGS (1)
  1. XANAX [Suspect]

REACTIONS (3)
  - ERYTHEMA [None]
  - PHARYNGEAL OEDEMA [None]
  - URTICARIA [None]
